FAERS Safety Report 9272493 (Version 3)
Quarter: 2013Q3

REPORT INFORMATION
  Report Type: Report from Study
  Country: GB (occurrence: GB)
  Receive Date: 20130506
  Receipt Date: 20130816
  Transmission Date: 20140515
  Serious: Yes (Other)
  Sender: FDA-Public Use
  Company Number: GB-ASTRAZENECA-2013SE30483

PATIENT
  Age: 15124 Day
  Sex: Male
  Weight: 52.6 kg

DRUGS (5)
  1. VANDETANIB [Suspect]
     Indication: THYROID CANCER METASTATIC
     Route: 048
     Dates: start: 20130408, end: 20130429
  2. AZD6244 [Suspect]
     Indication: THYROID CANCER METASTATIC
     Route: 048
     Dates: start: 20130422, end: 20130429
  3. MORPHINE SULPHATE [Concomitant]
  4. PAMIDRONATE [Concomitant]
     Dosage: AS REQUIRED
  5. THYROXINE [Concomitant]

REACTIONS (1)
  - Bradycardia [Recovered/Resolved]
